FAERS Safety Report 6343289-4 (Version None)
Quarter: 2009Q3

REPORT INFORMATION
  Report Type: 
  Country: None (occurrence: None)
  Receive Date: 20090908
  Receipt Date: 20090827
  Transmission Date: 20100115
  Serious: Yes (Other)
  Sender: FDA-Public Use
  Company Number: PHHY2009NL31552

PATIENT
  Sex: Female
  Weight: 29 kg

DRUGS (2)
  1. RITALIN [Suspect]
     Indication: ATTENTION DEFICIT/HYPERACTIVITY DISORDER
     Dosage: UNK
     Route: 048
     Dates: start: 20090401
  2. RITALIN [Suspect]
     Dosage: 5 MG, TID
     Route: 048

REACTIONS (4)
  - ASTHMA [None]
  - BREAST PAIN [None]
  - HEART RATE INCREASED [None]
  - TACHYCARDIA [None]
